FAERS Safety Report 25277016 (Version 1)
Quarter: 2025Q2

REPORT INFORMATION
  Report Type: Other
  Country: US (occurrence: US)
  Receive Date: 20250507
  Receipt Date: 20250507
  Transmission Date: 20250716
  Serious: Yes (Hospitalization, Other)
  Sender: ALVOGEN
  Company Number: US-ALVOGEN-2025097854

PATIENT
  Age: 30 Year
  Sex: Female

DRUGS (5)
  1. VENLAFAXINE [Suspect]
     Active Substance: VENLAFAXINE HYDROCHLORIDE
     Indication: Depression
  2. FENTANYL [Concomitant]
     Active Substance: FENTANYL
     Indication: Nerve compression
  3. PREGABALIN [Concomitant]
     Active Substance: PREGABALIN
     Indication: Nerve compression
  4. CANNABIS SATIVA SUBSP. INDICA TOP [Concomitant]
     Active Substance: CANNABIS SATIVA SUBSP. INDICA TOP
     Indication: Pain management
  5. LORAZEPAM [Concomitant]
     Active Substance: LORAZEPAM
     Indication: Agitation

REACTIONS (5)
  - Acute kidney injury [Recovering/Resolving]
  - Encephalopathy [Recovered/Resolved]
  - Jaundice [Unknown]
  - Rhabdomyolysis [Recovering/Resolving]
  - Hepatic function abnormal [Unknown]
